FAERS Safety Report 21036118 (Version 1)
Quarter: 2022Q3

REPORT INFORMATION
  Report Type: Spontaneous
  Country: US (occurrence: US)
  Receive Date: 20220701
  Receipt Date: 20220701
  Transmission Date: 20221027
  Serious: No
  Sender: FDA-Public Use
  Company Number: US-THERAPEUTICSMD-2021TMD02354

PATIENT
  Sex: Female
  Weight: 81.633 kg

DRUGS (4)
  1. IMVEXXY [Suspect]
     Active Substance: ESTRADIOL
     Indication: Vulvovaginal dryness
     Dosage: 10 ?G, 1X/DAY IN THE EVENING
     Route: 067
     Dates: start: 20210721, end: 20210723
  2. VITAMIN C [Concomitant]
     Active Substance: ASCORBIC ACID
  3. VITAMIN A [Concomitant]
     Active Substance: VITAMIN A
  4. ZINC [Concomitant]
     Active Substance: ZINC

REACTIONS (2)
  - Breast tenderness [Recovering/Resolving]
  - Breast pain [Recovering/Resolving]

NARRATIVE: CASE EVENT DATE: 20210101
